FAERS Safety Report 8017344-7 (Version None)
Quarter: 2012Q1

REPORT INFORMATION
  Report Type: 
  Country: None (occurrence: None)
  Receive Date: 20120102
  Receipt Date: 20111227
  Transmission Date: 20120608
  Serious: Yes (Hospitalization)
  Sender: FDA-Public Use
  Company Number: DE-ROCHE-1026105

PATIENT
  Age: 42 Year
  Sex: Male
  Weight: 80.9 kg

DRUGS (1)
  1. VEMURAFENIB [Suspect]
     Indication: METASTATIC MALIGNANT MELANOMA
     Dosage: LAST DOSE PRIOR TO SAE: 27/DEC/2011
     Route: 048
     Dates: start: 20111024

REACTIONS (1)
  - ERYSIPELAS [None]
